FAERS Safety Report 8325833-0 (Version None)
Quarter: 2012Q2

REPORT INFORMATION
  Report Type: 
  Country: None (occurrence: None)
  Receive Date: 20120501
  Receipt Date: 20120419
  Transmission Date: 20120825
  Serious: No
  Sender: FDA-Public Use
  Company Number: US-BIOGENIDEC-2012BI013706

PATIENT
  Sex: Female

DRUGS (4)
  1. TYSABRI [Suspect]
     Indication: MULTIPLE SCLEROSIS
     Route: 042
     Dates: start: 20070627, end: 20080806
  2. TYSABRI [Suspect]
     Route: 042
     Dates: start: 20090218, end: 20100723
  3. TYSABRI [Suspect]
     Route: 042
     Dates: start: 20101223, end: 20110617
  4. TYSABRI [Suspect]
     Route: 042
     Dates: start: 20120417

REACTIONS (9)
  - SENSATION OF HEAVINESS [None]
  - MULTIPLE SCLEROSIS RELAPSE [None]
  - MUSCULAR WEAKNESS [None]
  - FALL [None]
  - FATIGUE [None]
  - MULTIPLE SCLEROSIS [None]
  - MIGRAINE [None]
  - DIZZINESS [None]
  - ASTHENIA [None]
